FAERS Safety Report 7917265-1 (Version None)
Quarter: 2011Q4

REPORT INFORMATION
  Report Type: 
  Country: None (occurrence: None)
  Receive Date: 20111116
  Receipt Date: 20111101
  Transmission Date: 20120403
  Serious: Yes (Hospitalization)
  Sender: FDA-Public Use
  Company Number: PHEH2011US08280

PATIENT
  Sex: Male

DRUGS (10)
  1. PROMETHAZINE [Suspect]
     Indication: NAUSEA
     Dosage: 25 MG, Q5H
  2. EPLERENONE [Concomitant]
     Dosage: 50 MG, BID
  3. PERCOCET [Concomitant]
  4. RANITIDINE HYDROCHLORIDE [Concomitant]
     Dosage: 1 MG, AS NEEDED
  5. NOVOLOG [Concomitant]
     Dosage: 250-300 UNITS PER DAY
  6. CATAPRES-TTS-3 [Concomitant]
     Dosage: UNK
  7. NITROGLYCERIN [Concomitant]
     Indication: PAIN
     Dosage: 4 MG, PRN
  8. ATIVAN [Concomitant]
     Dosage: 1 MG, AS NEEDED
  9. TASIGNA [Suspect]
     Dosage: 150 MG, QID
     Route: 048
  10. LOPROX [Concomitant]

REACTIONS (14)
  - DIARRHOEA [None]
  - COUGH [None]
  - PRURITUS [None]
  - CHEST PAIN [None]
  - DIZZINESS [None]
  - HYPOPNOEA [None]
  - RHINORRHOEA [None]
  - GASTRIC DISORDER [None]
  - HEADACHE [None]
  - PALPITATIONS [None]
  - NAUSEA [None]
  - BLOOD GLUCOSE INCREASED [None]
  - HERPES ZOSTER [None]
  - CHEST DISCOMFORT [None]
